FAERS Safety Report 18865027 (Version 2)
Quarter: 2021Q1

REPORT INFORMATION
  Report Type: Spontaneous
  Country: US (occurrence: US)
  Receive Date: 20210208
  Receipt Date: 20210216
  Transmission Date: 20210420
  Serious: Yes (Other)
  Sender: FDA-Public Use
  Company Number: US-PFIZER INC-2020341436

PATIENT
  Age: 63 Year
  Sex: Female

DRUGS (2)
  1. XELJANZ XR [Suspect]
     Active Substance: TOFACITINIB CITRATE
     Indication: RHEUMATOID ARTHRITIS
     Dosage: 11 MG
  2. XELJANZ [Suspect]
     Active Substance: TOFACITINIB CITRATE
     Indication: RHEUMATOID ARTHRITIS
     Dosage: 5 MG, 2X/DAY (10 MG TABLET, HALF IN THE MORNING AND HALF IN THE EVENING)
     Route: 048

REACTIONS (4)
  - Drug dependence [Unknown]
  - Staphylococcal infection [Unknown]
  - Product prescribing error [Unknown]
  - Vomiting [Unknown]

NARRATIVE: CASE EVENT DATE: 20200615
